FAERS Safety Report 10995182 (Version 3)
Quarter: 2022Q1

REPORT INFORMATION
  Report Type: Spontaneous
  Country: US (occurrence: US)
  Receive Date: 20150407
  Receipt Date: 20220104
  Transmission Date: 20220423
  Serious: No
  Sender: FDA-Public Use
  Company Number: US-PFIZER INC-2015115797

PATIENT
  Age: 69 Year
  Sex: Female
  Weight: 86.168 kg

DRUGS (1)
  1. GABAPENTIN [Suspect]
     Active Substance: GABAPENTIN
     Dosage: UNK

REACTIONS (6)
  - Drug hypersensitivity [Unknown]
  - Behaviour disorder [Unknown]
  - Crying [Unknown]
  - Anger [Unknown]
  - Screaming [Unknown]
  - Mood altered [Unknown]
